FAERS Safety Report 13055586 (Version 1)
Quarter: 2016Q4

REPORT INFORMATION
  Report Type: Spontaneous
  Country: US (occurrence: US)
  Receive Date: 20161222
  Receipt Date: 20161222
  Transmission Date: 20170207
  Serious: No
  Sender: FDA-Public Use
  Company Number: US-AMGEN-USASP2016181339

PATIENT
  Age: 37 Year
  Sex: Male

DRUGS (8)
  1. RETIN-A [Concomitant]
     Active Substance: TRETINOIN
  2. CLOMIPHENE [Concomitant]
     Active Substance: CLOMIPHENE
  3. SYNTHROID [Concomitant]
     Active Substance: LEVOTHYROXINE SODIUM
  4. ENBREL [Suspect]
     Active Substance: ETANERCEPT
     Indication: PSORIATIC ARTHROPATHY
     Dosage: 50 MG, 2 TIMES/WK
     Route: 058
     Dates: start: 201602
  5. MILK THISTLE [Concomitant]
     Active Substance: MILK THISTLE
  6. DRONABINOL. [Concomitant]
     Active Substance: DRONABINOL
  7. ZINC [Concomitant]
     Active Substance: ZINC\ZINC CHLORIDE
  8. ARGININE [Concomitant]
     Active Substance: ARGININE

REACTIONS (3)
  - Injection site bruising [Unknown]
  - Psoriasis [Unknown]
  - Nasopharyngitis [Unknown]

NARRATIVE: CASE EVENT DATE: 2016
